FAERS Safety Report 7238721-8 (Version None)
Quarter: 2011Q1

REPORT INFORMATION
  Report Type: 
  Country: None (occurrence: None)
  Receive Date: 20110114
  Receipt Date: 20110111
  Transmission Date: 20110831
  Serious: Yes (Hospitalization)
  Sender: FDA-Public Use
  Company Number: A0904894A

PATIENT
  Age: 80 Year
  Sex: Male

DRUGS (6)
  1. OLMESARTAN MEDOXOMIL [Concomitant]
  2. GLUCOSE OXIDASE+LACTOPEROXIDASE+LYSOZYME+NA MONOFLUOROPHOSPH (GLUCOSE [Suspect]
     Indication: PRODUCT USED FOR UNKNOWN INDICATION
     Dosage: DENTAL
     Route: 004
  3. COUGH MEDICATION (FORMULATION UNKNOWN) (COUGH MEDICATION) [Suspect]
     Indication: PRODUCT USED FOR UNKNOWN INDICATION
  4. GLUCOSE OXIDASE + LACTOPEROXIDASE + LYSOZYME MOUTHWASH (GLUCOSEOX+LACT [Suspect]
     Indication: PRODUCT USED FOR UNKNOWN INDICATION
  5. PREPARED DIGITALIS [Concomitant]
  6. WARFARIN SODIUM [Concomitant]

REACTIONS (5)
  - PRURITUS [None]
  - FALL [None]
  - URTICARIA [None]
  - APHASIA [None]
  - BLOOD PRESSURE DECREASED [None]
